FAERS Safety Report 19395556 (Version 2)
Quarter: 2021Q2

REPORT INFORMATION
  Report Type: Report from Study
  Country: US (occurrence: US)
  Receive Date: 20210609
  Receipt Date: 20210623
  Transmission Date: 20210717
  Serious: Yes (Hospitalization)
  Sender: FDA-Public Use
  Company Number: US-BAYER-2021-151554

PATIENT
  Age: 77 Year
  Sex: Female
  Weight: 105.67 kg

DRUGS (3)
  1. ADEMPAS [Suspect]
     Active Substance: RIOCIGUAT
     Indication: PULMONARY ARTERIAL HYPERTENSION
     Dosage: 2 MG, TID
     Route: 048
  2. TYVASO [Suspect]
     Active Substance: TREPROSTINIL
     Indication: PULMONARY ARTERIAL HYPERTENSION
     Dosage: 18?54 ?G, QID
     Route: 055
     Dates: start: 20201029
  3. ADEMPAS [Suspect]
     Active Substance: RIOCIGUAT
     Indication: PULMONARY ARTERIAL HYPERTENSION
     Dosage: UNK
     Route: 048
     Dates: start: 20201001

REACTIONS (6)
  - Fall [Recovered/Resolved]
  - Muscle spasms [Recovered/Resolved]
  - Fluid retention [Unknown]
  - Arthralgia [Recovered/Resolved]
  - Epistaxis [Unknown]
  - Blood pressure abnormal [None]

NARRATIVE: CASE EVENT DATE: 20210520
